FAERS Safety Report 20215241 (Version 1)
Quarter: 2021Q4

REPORT INFORMATION
  Report Type: Spontaneous
  Country: US (occurrence: US)
  Receive Date: 20211222
  Receipt Date: 20211222
  Transmission Date: 20220303
  Serious: Yes (Death, Other)
  Sender: FDA-Public Use
  Company Number: US-009507513-2004USA006978

PATIENT
  Sex: Female

DRUGS (1)
  1. PREVYMIS [Suspect]
     Active Substance: LETERMOVIR
     Indication: Product used for unknown indication
     Dosage: 480 MG DAILY BY MOUTH
     Route: 048

REACTIONS (1)
  - Death [Fatal]
